FAERS Safety Report 6470307-5 (Version None)
Quarter: 2009Q4

REPORT INFORMATION
  Report Type: 
  Country: None (occurrence: None)
  Receive Date: 20091119
  Receipt Date: 20090421
  Transmission Date: 20100525
  Serious: Yes (Life-Threatening)
  Sender: FDA-Public Use
  Company Number: 2009-195618-NL

PATIENT
  Sex: Female

DRUGS (1)
  1. IMPLANON [Suspect]

REACTIONS (1)
  - CEREBROVASCULAR ACCIDENT [None]
